FAERS Safety Report 4977773-2 (Version None)
Quarter: 2006Q1

REPORT INFORMATION
  Report Type: 
  Country: None (occurrence: None)
  Receive Date: 20060215
  Receipt Date: 20050728
  Transmission Date: 20060701
  Serious: Yes (Death, Other)
  Sender: FDA-Public Use
  Company Number: MC200500663

PATIENT
  Age: 83 Year
  Sex: Male

DRUGS (4)
  1. ANGIOMAX [Suspect]
     Indication: PERCUTANEOUS CORONARY INTERVENTION
     Dosage: SEE IMAGE
     Route: 042
     Dates: start: 20050725, end: 20050725
  2. ANGIOMAX [Suspect]
     Indication: PERCUTANEOUS CORONARY INTERVENTION
     Dosage: SEE IMAGE
     Route: 042
     Dates: start: 20050725
  3. PLAVIX [Suspect]
     Dosage: 300 MG
  4. ASPIRIN [Suspect]
     Dosage: 325

REACTIONS (2)
  - CEREBRAL HAEMORRHAGE [None]
  - HEMIPLEGIA [None]
